FAERS Safety Report 9457945 (Version 1)
Quarter: 2013Q3

REPORT INFORMATION
  Report Type: Spontaneous
  Country: US (occurrence: None)
  Receive Date: 20130814
  Receipt Date: 20130814
  Transmission Date: 20140515
  Serious: Yes (Death)
  Sender: FDA-Public Use
  Company Number: None

PATIENT
  Age: 53 Year
  Sex: Male

DRUGS (1)
  1. TRIMIX [Suspect]
     Indication: ERECTILE DYSFUNCTION
     Dates: start: 20130811, end: 20130811

REACTIONS (5)
  - Hyperventilation [None]
  - Hypertension [None]
  - Hyperhidrosis [None]
  - Chest pain [None]
  - Cardiac arrest [None]
